FAERS Safety Report 19921054 (Version 2)
Quarter: 2022Q2

REPORT INFORMATION
  Report Type: Spontaneous
  Country: NL (occurrence: NL)
  Receive Date: 20211005
  Receipt Date: 20220414
  Transmission Date: 20220720
  Serious: Yes (Death, Hospitalization, Other)
  Sender: FDA-Public Use
  Company Number: NL-009507513-2106NLD001391

PATIENT
  Age: 4 Year
  Sex: Male

DRUGS (11)
  1. CASPOFUNGIN [Suspect]
     Active Substance: CASPOFUNGIN
     Indication: Candida infection
     Dosage: UNK
     Route: 065
  2. CISPLATIN [Suspect]
     Active Substance: CISPLATIN
     Indication: Neuroblastoma
     Dosage: DCOG-NBL 2009 HIGH RISK PROTOCOL
  3. DOXORUBICIN [Suspect]
     Active Substance: DOXORUBICIN
     Indication: Neuroblastoma
     Dosage: DCOG-NBL 2009 HIGH RISK PROTOCOL
  4. ETOPOSIDE [Suspect]
     Active Substance: ETOPOSIDE
     Indication: Neuroblastoma
     Dosage: DCOG-NBL 2009 HIGH RISK PROTOCOL
  5. VINDESINE [Suspect]
     Active Substance: VINDESINE
     Indication: Neuroblastoma
     Dosage: DCOG-NBL 2009 HIGH RISK PROTOCOL
  6. VINCRISTINE [Suspect]
     Active Substance: VINCRISTINE
     Indication: Neuroblastoma
     Dosage: DCOG-NBL 2009 HIGH RISK PROTOCOL
  7. IFOSFAMIDE [Suspect]
     Active Substance: IFOSFAMIDE
     Indication: Neuroblastoma
     Dosage: DCOG-NBL 2009 HIGH RISK PROTOCOL
  8. CYCLOPHOSPHAMIDE [Suspect]
     Active Substance: CYCLOPHOSPHAMIDE
     Indication: Neuroblastoma
     Dosage: DCOG-NBL 2009 HIGH RISK PROTOCOL
  9. TRETINOIN [Suspect]
     Active Substance: TRETINOIN
     Indication: Neuroblastoma
     Dosage: DCOG-NBL 2009 HIGH RISK PROTOCOL
  10. DACARBAZINE [Suspect]
     Active Substance: DACARBAZINE
     Indication: Neuroblastoma
     Dosage: DCOG-NBL 2009 HIGH RISK PROTOCOL
  11. ITRACONAZOLE [Concomitant]
     Active Substance: ITRACONAZOLE
     Indication: Antifungal prophylaxis
     Dosage: 5 MILLIGRAM/KILOGRAM, QD
     Route: 048

REACTIONS (5)
  - Drug ineffective [Fatal]
  - Candida infection [Fatal]
  - Sepsis [Fatal]
  - Respiratory failure [Fatal]
  - Cardiac failure [Fatal]
